FAERS Safety Report 9478666 (Version 2)
Quarter: 2013Q3

REPORT INFORMATION
  Report Type: Report from Study
  Country: NL (occurrence: NL)
  Receive Date: 20130827
  Receipt Date: 20130827
  Transmission Date: 20140515
  Serious: Yes (Death)
  Sender: FDA-Public Use
  Company Number: NL-ABBOTT-12P-114-0891966-00

PATIENT
  Age: 87 Year
  Sex: Male

DRUGS (9)
  1. LUCRIN DEPOT 11.25 MG [Suspect]
     Indication: PROSTATE CANCER
     Route: 058
     Dates: start: 20070531, end: 20120519
  2. ALENDRONIC ACID [Concomitant]
     Indication: METASTASIS
     Route: 048
     Dates: end: 20120519
  3. DICLOFENAC SODIUM [Concomitant]
     Indication: PAIN
     Route: 048
     Dates: end: 20120519
  4. LACTULOSE [Concomitant]
     Indication: CONSTIPATION
     Route: 048
     Dates: end: 20120519
  5. MORFINE DRINK [Concomitant]
     Indication: PAIN
     Route: 048
     Dates: end: 20120519
  6. OMEPRAZOL [Concomitant]
     Indication: PROPHYLAXIS
     Route: 048
     Dates: end: 20120519
  7. OMEPRAZOL [Concomitant]
     Indication: GASTRIC DISORDER
  8. OXYCODON [Concomitant]
     Indication: PAIN
     Route: 048
     Dates: end: 20120519
  9. SOLIFENACINE [Concomitant]
     Indication: PROSTATE CANCER
     Route: 048
     Dates: end: 20120519

REACTIONS (1)
  - Constipation [Fatal]
